FAERS Safety Report 7569267-5 (Version None)
Quarter: 2011Q2

REPORT INFORMATION
  Report Type: 
  Country: None (occurrence: None)
  Receive Date: 20110623
  Receipt Date: 20110616
  Transmission Date: 20111010
  Serious: Yes (Other)
  Sender: FDA-Public Use
  Company Number: PHHY2011US53853

PATIENT
  Sex: Female

DRUGS (4)
  1. MUCOMYST [Concomitant]
  2. ALBUTEROL SULFATE AUTOHALER [Concomitant]
  3. SODIUM CHLORIDE [Concomitant]
  4. TOBI [Suspect]
     Dosage: UNK
     Dates: start: 20110611

REACTIONS (5)
  - OROPHARYNGEAL PAIN [None]
  - TINNITUS [None]
  - BRONCHOSPASM [None]
  - APHONIA [None]
  - DYSPHONIA [None]
